FAERS Safety Report 11222129 (Version 1)
Quarter: 2015Q2

REPORT INFORMATION
  Report Type: Report from Study
  Country: GB (occurrence: GB)
  Receive Date: 20150626
  Receipt Date: 20150626
  Transmission Date: 20150821
  Serious: Yes (Other)
  Sender: FDA-Public Use
  Company Number: PHFR2015GB004562

PATIENT
  Age: 59 Year
  Sex: Female

DRUGS (4)
  1. SOLIFENACIN [Concomitant]
     Active Substance: SOLIFENACIN
     Indication: HYPERTONIC BLADDER
  2. GILENYA [Suspect]
     Active Substance: FINGOLIMOD HYDROCHLORIDE
     Indication: RELAPSING-REMITTING MULTIPLE SCLEROSIS
     Dosage: UNK
     Route: 065
  3. BACLOFEN. [Suspect]
     Active Substance: BACLOFEN
     Indication: MUSCLE SPASMS
     Dosage: UNK
     Route: 065
  4. ENALAPRIL [Concomitant]
     Active Substance: ENALAPRIL
     Indication: BLOOD PRESSURE ABNORMAL
     Dosage: UNK
     Route: 065

REACTIONS (14)
  - Memory impairment [Unknown]
  - Uhthoff^s phenomenon [Unknown]
  - Vision blurred [Unknown]
  - Balance disorder [Unknown]
  - Burning sensation [Unknown]
  - Muscle spasms [Unknown]
  - Fatigue [Unknown]
  - Sleep disorder [Unknown]
  - Discomfort [Unknown]
  - Optic neuritis [Unknown]
  - Dehydration [Unknown]
  - Visual impairment [Unknown]
  - Paraesthesia [Unknown]
  - Feeling abnormal [Unknown]
